FAERS Safety Report 6945289-X (Version None)
Quarter: 2010Q3

REPORT INFORMATION
  Report Type: 
  Country: None (occurrence: None)
  Receive Date: 20100817
  Receipt Date: 20090707
  Transmission Date: 20110219
  Serious: No
  Sender: FDA-Public Use
  Company Number: 20096841

PATIENT
  Age: 33 Year
  Sex: Female

DRUGS (1)
  1. LIORESAL [Suspect]
     Indication: MUSCLE SPASTICITY
     Dosage: UNK MCG: DAILY, INTRATHECAL
     Route: 037

REACTIONS (1)
  - DRUG INEFFECTIVE [None]
